FAERS Safety Report 22180062 (Version 1)
Quarter: 2023Q2

REPORT INFORMATION
  Report Type: Report from Study
  Country: PR (occurrence: PR)
  Receive Date: 20230406
  Receipt Date: 20230406
  Transmission Date: 20230721
  Serious: Yes (Other)
  Sender: FDA-Public Use
  Company Number: PR-ABBVIE-4717730

PATIENT
  Sex: Female
  Weight: 81.646 kg

DRUGS (3)
  1. RINVOQ [Suspect]
     Active Substance: UPADACITINIB
     Indication: Rheumatoid arthritis
     Route: 048
     Dates: start: 20210428
  2. Pfizer BioNTech vaccine [Concomitant]
     Indication: COVID-19
     Dosage: 2ND DOSE
     Route: 030
     Dates: start: 20210826, end: 20210826
  3. Pfizer BioNTech vaccine [Concomitant]
     Indication: COVID-19
     Dosage: 1ST DOSE
     Route: 030
     Dates: start: 20210807, end: 20210807

REACTIONS (8)
  - Infarction [Recovering/Resolving]
  - Diarrhoea [Recovering/Resolving]
  - Hypertension [Recovering/Resolving]
  - Chest pain [Recovering/Resolving]
  - Thyroid disorder [Not Recovered/Not Resolved]
  - Tachycardia [Not Recovered/Not Resolved]
  - Vomiting [Recovering/Resolving]
  - Headache [Recovering/Resolving]

NARRATIVE: CASE EVENT DATE: 20230301
